FAERS Safety Report 9454757 (Version 2)
Quarter: 2014Q2

REPORT INFORMATION
  Report Type: Report from Study
  Country: US (occurrence: US)
  Receive Date: 20130812
  Receipt Date: 20140429
  Transmission Date: 20141212
  Serious: Yes (Hospitalization)
  Sender: FDA-Public Use
  Company Number: US-ROCHE-1257849

PATIENT
  Sex: Female

DRUGS (1)
  1. XOLAIR [Suspect]
     Indication: ASTHMA
     Route: 058
     Dates: start: 2011

REACTIONS (17)
  - Condition aggravated [Unknown]
  - Diarrhoea [Not Recovered/Not Resolved]
  - Muscle spasms [Recovered/Resolved]
  - Asthenia [Not Recovered/Not Resolved]
  - Asthenia [Not Recovered/Not Resolved]
  - Echocardiogram abnormal [Unknown]
  - Tremor [Unknown]
  - Malaise [Not Recovered/Not Resolved]
  - Fatigue [Not Recovered/Not Resolved]
  - Bronchospasm [Not Recovered/Not Resolved]
  - Hypokalaemia [Not Recovered/Not Resolved]
  - Asthma [Recovering/Resolving]
  - Gait disturbance [Unknown]
  - Dyspnoea exertional [Unknown]
  - Tremor [Unknown]
  - Muscular weakness [Unknown]
  - Tremor [Unknown]
